FAERS Safety Report 19972632 (Version 1)
Quarter: 2021Q4

REPORT INFORMATION
  Report Type: Report from Study
  Country: FR (occurrence: FR)
  Receive Date: 20211020
  Receipt Date: 20211020
  Transmission Date: 20220304
  Serious: Yes (Other)
  Sender: FDA-Public Use
  Company Number: FR-MERCK HEALTHCARE KGAA-9272125

PATIENT
  Age: 39 Year
  Sex: Female

DRUGS (1)
  1. CHORIOGONADOTROPIN ALFA [Suspect]
     Active Substance: CHORIOGONADOTROPIN ALFA
     Indication: Controlled ovarian stimulation

REACTIONS (7)
  - Hypothyroidism [Unknown]
  - Depression [Unknown]
  - Suicidal ideation [Unknown]
  - Mood swings [Unknown]
  - Anxiety [Unknown]
  - Headache [Unknown]
  - Endometriosis [Unknown]
